FAERS Safety Report 7323736-1 (Version None)
Quarter: 2011Q1

REPORT INFORMATION
  Report Type: 
  Country: None (occurrence: None)
  Receive Date: 20110301
  Receipt Date: 20110214
  Transmission Date: 20110831
  Serious: Yes (Disabling, Other)
  Sender: FDA-Public Use
  Company Number: FI-BAYER-2011-014051

PATIENT
  Age: 38 Year
  Sex: Female
  Weight: 84 kg

DRUGS (1)
  1. MIRENA [Suspect]
     Indication: MENORRHAGIA
     Dosage: 20 ?G, CONT
     Route: 015
     Dates: start: 20080201, end: 20110101

REACTIONS (17)
  - BLOOD TEST ABNORMAL [None]
  - HEART RATE INCREASED [None]
  - GROIN PAIN [None]
  - INCREASED APPETITE [None]
  - SUICIDAL IDEATION [None]
  - WEIGHT INCREASED [None]
  - PRURITUS [None]
  - ARTHRALGIA [None]
  - FEAR OF DISEASE [None]
  - FATIGUE [None]
  - HEADACHE [None]
  - ALOPECIA [None]
  - SUBCUTANEOUS ABSCESS [None]
  - DEPRESSION [None]
  - BLOOD PRESSURE INCREASED [None]
  - COUGH [None]
  - VARICOSE VEIN [None]
